FAERS Safety Report 7981868-9 (Version None)
Quarter: 2011Q4

REPORT INFORMATION
  Report Type: 
  Country: None (occurrence: None)
  Receive Date: 20111213
  Receipt Date: 20111129
  Transmission Date: 20120403
  Serious: Yes (Hospitalization)
  Sender: FDA-Public Use
  Company Number: 2011-0149

PATIENT
  Age: 70 Year
  Sex: Male

DRUGS (12)
  1. ACETYLSALICYLIC ACID SRT [Concomitant]
  2. CARBIDOPA AND LEVODOPA [Concomitant]
  3. APOKYN [Suspect]
     Indication: PARKINSON'S DISEASE
     Dosage: 0.02 L, AS REQUIRED, SUBCUTANEOUS
     Route: 058
     Dates: start: 20101201
  4. HYDROCORTISONE [Concomitant]
  5. SINEMET [Concomitant]
  6. MULTI-VITAMIN [Concomitant]
  7. TESTOSTERONE [Concomitant]
  8. NAPROXEN [Concomitant]
  9. SERTRALINE HYDROCHLORIDE [Concomitant]
  10. CLORAZEPATE DIPOTASSIUM [Concomitant]
  11. HYDROCODONE BITARTRATE AND ACETAMINOPHEN [Concomitant]
  12. CLONAZEPAM [Concomitant]

REACTIONS (6)
  - LIVER ABSCESS [None]
  - FALL [None]
  - HEPATIC INFECTION BACTERIAL [None]
  - CONDITION AGGRAVATED [None]
  - COMPUTERISED TOMOGRAM ABNORMAL [None]
  - CARDIAC DISORDER [None]
